FAERS Safety Report 4436242-9 (Version None)
Quarter: 2004Q3

REPORT INFORMATION
  Report Type: 
  Country: None (occurrence: None)
  Receive Date: 20040830
  Receipt Date: 20040609
  Transmission Date: 20050211
  Serious: Yes (Other)
  Sender: FDA-Public Use
  Company Number: US-BRISTOL-MYERS SQUIBB COMPANY-12609921

PATIENT
  Age: 76 Year
  Sex: Male
  Weight: 87 kg

DRUGS (5)
  1. ERBITUX [Suspect]
     Indication: COLORECTAL CANCER
     Dosage: DOSE HELD 09-JUN-2004.
     Route: 042
     Dates: start: 20040526, end: 20040526
  2. BENADRYL [Concomitant]
     Indication: PREMEDICATION
     Route: 042
     Dates: start: 20040526, end: 20040526
  3. DECADRON [Concomitant]
     Indication: PREMEDICATION
     Route: 042
     Dates: start: 20040526, end: 20040526
  4. KYTRIL [Concomitant]
     Indication: PREMEDICATION
     Route: 042
     Dates: start: 20040526, end: 20040526
  5. IRINOTECAN [Concomitant]
     Dates: start: 20040526, end: 20040526

REACTIONS (1)
  - RASH PUSTULAR [None]
